FAERS Safety Report 7446191-X (Version None)
Quarter: 2011Q2

REPORT INFORMATION
  Report Type: 
  Country: None (occurrence: None)
  Receive Date: 20110429
  Receipt Date: 20110420
  Transmission Date: 20111010
  Serious: Yes (Disabling)
  Sender: FDA-Public Use
  Company Number: TR-US-EMD SERONO, INC.-7054919

PATIENT
  Sex: Male
  Weight: 73 kg

DRUGS (4)
  1. REBIF [Suspect]
     Indication: MULTIPLE SCLEROSIS
     Route: 058
     Dates: start: 20080701, end: 20110419
  2. LYRICA [Concomitant]
     Route: 048
  3. DEPAKENE [Concomitant]
     Route: 048
  4. EFFEXOR [Concomitant]
     Route: 048
     Dates: end: 20110419

REACTIONS (2)
  - FATIGUE [None]
  - GAIT DISTURBANCE [None]
